FAERS Safety Report 14695711 (Version 1)
Quarter: 2018Q1

REPORT INFORMATION
  Report Type: Spontaneous
  Country: US (occurrence: US)
  Receive Date: 20180329
  Receipt Date: 20180329
  Transmission Date: 20180509
  Serious: Yes (Other)
  Sender: FDA-Public Use
  Company Number: US-FDC LIMITED-2018RIS00149

PATIENT
  Sex: Male

DRUGS (1)
  1. TIMOLOL MALEATE. [Suspect]
     Active Substance: TIMOLOL MALEATE
     Indication: INTRAOCULAR PRESSURE INCREASED
     Dosage: UNK
     Dates: start: 201701

REACTIONS (7)
  - Weight increased [Recovering/Resolving]
  - Drug ineffective [Not Recovered/Not Resolved]
  - Oedema peripheral [Recovering/Resolving]
  - Blood pressure decreased [Unknown]
  - Skin discolouration [Unknown]
  - Dacryostenosis acquired [Unknown]
  - Hypoaesthesia [Recovered/Resolved]

NARRATIVE: CASE EVENT DATE: 201802
